FAERS Safety Report 25284468 (Version 1)
Quarter: 2025Q2

REPORT INFORMATION
  Report Type: Spontaneous
  Country: CA (occurrence: CA)
  Receive Date: 20250508
  Receipt Date: 20250508
  Transmission Date: 20250717
  Serious: Yes (Hospitalization, Other)
  Sender: TEVA
  Company Number: CA-TEVA-VS-3327429

PATIENT
  Age: 60 Year
  Sex: Female
  Weight: 129 kg

DRUGS (58)
  1. PREDNISONE [Suspect]
     Active Substance: PREDNISONE
     Indication: Product used for unknown indication
     Route: 065
  2. PREDNISONE [Suspect]
     Active Substance: PREDNISONE
     Indication: Product used for unknown indication
     Route: 065
  3. PREDNISONE [Suspect]
     Active Substance: PREDNISONE
     Indication: Product used for unknown indication
     Route: 065
  4. PREDNISONE [Suspect]
     Active Substance: PREDNISONE
     Indication: Product used for unknown indication
     Route: 048
  5. Saltrim [Concomitant]
     Indication: Product used for unknown indication
     Route: 065
  6. SUCRALFATE [Concomitant]
     Active Substance: SUCRALFATE
     Indication: Product used for unknown indication
     Route: 065
  7. TAVNEOS [Concomitant]
     Active Substance: AVACOPAN
     Indication: Product used for unknown indication
     Route: 065
  8. TRAZODONE [Concomitant]
     Active Substance: TRAZODONE HYDROCHLORIDE
     Indication: Product used for unknown indication
     Route: 065
  9. ACETAMINOPHEN [Concomitant]
     Active Substance: ACETAMINOPHEN
     Indication: Product used for unknown indication
     Route: 065
     Dates: start: 20230124, end: 20230124
  10. AMLODIPINE [Concomitant]
     Active Substance: AMLODIPINE BESYLATE
     Indication: Product used for unknown indication
     Route: 065
  11. ASPIRIN [Concomitant]
     Active Substance: ASPIRIN
     Indication: Product used for unknown indication
     Route: 065
  12. ASPIRIN [Concomitant]
     Active Substance: ASPIRIN
     Indication: Product used for unknown indication
     Route: 065
  13. AMLODIPINE BESYLATE\PERINDOPRIL ERBUMINE [Concomitant]
     Active Substance: AMLODIPINE BESYLATE\PERINDOPRIL ERBUMINE
     Indication: Product used for unknown indication
     Route: 065
  14. DIPHENHYDRAMINE [Concomitant]
     Active Substance: DIPHENHYDRAMINE
     Indication: Product used for unknown indication
     Route: 065
     Dates: start: 20230124, end: 20230124
  15. RUXIENCE [Suspect]
     Active Substance: RITUXIMAB-PVVR
     Indication: Granulomatosis with polyangiitis
     Dosage: 375 MG/M2, WEEKLY, FOR 4 WEEKS
     Route: 042
     Dates: start: 20210527, end: 20210527
  16. RUXIENCE [Suspect]
     Active Substance: RITUXIMAB-PVVR
     Indication: Granulomatosis with polyangiitis
     Dosage: 375 MG/M2, WEEKLY, FOR 4 WEEKS
     Route: 042
     Dates: start: 20210527, end: 20210527
  17. RUXIENCE [Suspect]
     Active Substance: RITUXIMAB-PVVR
     Indication: Granulomatosis with polyangiitis
     Dosage: 375 MG/M2, WEEKLY, FOR 4 WEEKS
     Route: 042
     Dates: start: 20210513, end: 20210513
  18. RUXIENCE [Suspect]
     Active Substance: RITUXIMAB-PVVR
     Indication: Granulomatosis with polyangiitis
     Dosage: 862 MG, WEEKLY, FOR 4 WEEKS
     Route: 042
     Dates: start: 20220804
  19. RUXIENCE [Suspect]
     Active Substance: RITUXIMAB-PVVR
     Indication: Granulomatosis with polyangiitis
     Dosage: 375 MG/M2, WEEKLY, FOR 4 WEEKS
     Route: 042
     Dates: start: 20210513, end: 20210603
  20. RUXIENCE [Suspect]
     Active Substance: RITUXIMAB-PVVR
     Indication: Granulomatosis with polyangiitis
     Dosage: 862 MG, WEEKLY, FOR 4 WEEKS
     Route: 042
     Dates: start: 20211027
  21. RUXIENCE [Suspect]
     Active Substance: RITUXIMAB-PVVR
     Indication: Granulomatosis with polyangiitis
     Dosage: 862 MG, WEEKLY, FOR 4 WEEKS
     Route: 042
     Dates: start: 20220228, end: 20220228
  22. RUXIENCE [Suspect]
     Active Substance: RITUXIMAB-PVVR
     Indication: Granulomatosis with polyangiitis
     Dosage: 862 MG, WEEKLY, FOR 4 WEEKS
     Route: 042
     Dates: start: 20211027
  23. RUXIENCE [Suspect]
     Active Substance: RITUXIMAB-PVVR
     Indication: Granulomatosis with polyangiitis
     Dosage: 862 MG, WEEKLY, FOR 4 WEEKS
     Route: 042
     Dates: start: 20220307
  24. RUXIENCE [Suspect]
     Active Substance: RITUXIMAB-PVVR
     Indication: Granulomatosis with polyangiitis
     Dosage: 862 MG, WEEKLY, FOR 4 WEEKS
     Route: 042
     Dates: start: 20220228, end: 20220321
  25. RUXIENCE [Suspect]
     Active Substance: RITUXIMAB-PVVR
     Indication: Granulomatosis with polyangiitis
     Dosage: 862 MG, WEEKLY, FOR 4 WEEKS
     Route: 042
     Dates: start: 20220804
  26. RUXIENCE [Suspect]
     Active Substance: RITUXIMAB-PVVR
     Indication: Granulomatosis with polyangiitis
     Dosage: 862 MG, WEEKLY, FOR 4 WEEKS
     Route: 042
     Dates: start: 20220321
  27. RUXIENCE [Suspect]
     Active Substance: RITUXIMAB-PVVR
     Indication: Granulomatosis with polyangiitis
     Dosage: 862 MG/M2, WEEKLY, FOR 4 WEEKS
     Route: 042
     Dates: start: 20220321
  28. RUXIENCE [Suspect]
     Active Substance: RITUXIMAB-PVVR
     Indication: Granulomatosis with polyangiitis
     Dosage: 862 MG, WEEKLY, FOR 4 WEEKS
     Route: 042
     Dates: start: 20220804, end: 20220825
  29. RUXIENCE [Suspect]
     Active Substance: RITUXIMAB-PVVR
     Indication: Granulomatosis with polyangiitis
     Dosage: 862 MG, WEEKLY, FOR 4 WEEKS
     Route: 042
     Dates: start: 20220228, end: 20220228
  30. RUXIENCE [Suspect]
     Active Substance: RITUXIMAB-PVVR
     Indication: Granulomatosis with polyangiitis
     Dosage: 862 MG, WEEKLY, FOR 4 WEEKS
     Route: 042
     Dates: start: 20220811
  31. RUXIENCE [Suspect]
     Active Substance: RITUXIMAB-PVVR
     Indication: Granulomatosis with polyangiitis
     Dosage: 862 MG, WEEKLY, FOR 4 WEEKS
     Route: 042
     Dates: start: 20220825
  32. RUXIENCE [Suspect]
     Active Substance: RITUXIMAB-PVVR
     Indication: Granulomatosis with polyangiitis
     Dosage: 862 MG, WEEKLY, FOR 4 WEEKS
     Route: 042
     Dates: start: 20220811
  33. RUXIENCE [Suspect]
     Active Substance: RITUXIMAB-PVVR
     Indication: Granulomatosis with polyangiitis
     Dosage: 862 MG, WEEKLY, FOR 4 WEEKS
     Route: 042
     Dates: start: 20220817
  34. RUXIENCE [Suspect]
     Active Substance: RITUXIMAB-PVVR
     Indication: Granulomatosis with polyangiitis
     Dosage: 862 MG, WEEKLY, FOR 4 WEEKS
     Route: 042
     Dates: start: 20220804
  35. RUXIENCE [Suspect]
     Active Substance: RITUXIMAB-PVVR
     Indication: Granulomatosis with polyangiitis
     Dosage: 862 MG, WEEKLY, FOR 4 WEEKS
     Route: 042
     Dates: start: 20220825
  36. RUXIENCE [Suspect]
     Active Substance: RITUXIMAB-PVVR
     Indication: Granulomatosis with polyangiitis
     Dosage: 862 MG, WEEKLY, FOR 4 WEEKS
     Route: 042
     Dates: start: 20220825
  37. RUXIENCE [Suspect]
     Active Substance: RITUXIMAB-PVVR
     Indication: Granulomatosis with polyangiitis
     Dosage: 1000 MG, WEEKLY, FOR 4 WEEKS
     Route: 042
     Dates: start: 20230103, end: 20230124
  38. RUXIENCE [Suspect]
     Active Substance: RITUXIMAB-PVVR
     Indication: Granulomatosis with polyangiitis
     Route: 042
     Dates: start: 20231012, end: 20231110
  39. RUXIENCE [Suspect]
     Active Substance: RITUXIMAB-PVVR
     Indication: Granulomatosis with polyangiitis
     Route: 042
     Dates: start: 20240314
  40. RUXIENCE [Suspect]
     Active Substance: RITUXIMAB-PVVR
     Indication: Granulomatosis with polyangiitis
     Route: 042
     Dates: start: 20240405
  41. RUXIENCE [Suspect]
     Active Substance: RITUXIMAB-PVVR
     Indication: Granulomatosis with polyangiitis
     Dosage: 862 MG, WEEKLY, FOR 4 WEEKS
     Route: 042
     Dates: start: 20211031, end: 20211031
  42. RUXIENCE [Suspect]
     Active Substance: RITUXIMAB-PVVR
     Indication: Granulomatosis with polyangiitis
     Dosage: 862 MG, WEEKLY, FOR 4 WEEKS
     Route: 042
     Dates: start: 20211006, end: 20211027
  43. RUXIENCE [Suspect]
     Active Substance: RITUXIMAB-PVVR
     Indication: Granulomatosis with polyangiitis
     Dosage: 375 MG/M2, WEEKLY, FOR 4 WEEKS
     Route: 042
     Dates: start: 20210603, end: 20210603
  44. RUXIENCE [Suspect]
     Active Substance: RITUXIMAB-PVVR
     Indication: Granulomatosis with polyangiitis
     Dosage: 375 MG/M2, WEEKLY, FOR 4 WEEKS
     Route: 042
     Dates: start: 20210513, end: 20210513
  45. RUXIENCE [Suspect]
     Active Substance: RITUXIMAB-PVVR
     Indication: Granulomatosis with polyangiitis
     Dosage: 375 MG/M2, WEEKLY, FOR 4 WEEKS
     Route: 042
     Dates: start: 20210520, end: 20210520
  46. RUXIENCE [Suspect]
     Active Substance: RITUXIMAB-PVVR
     Indication: Granulomatosis with polyangiitis
     Dosage: 375 MG/M2, WEEKLY, FOR 4 WEEKS
     Route: 042
     Dates: start: 20210603, end: 20210603
  47. RUXIENCE [Suspect]
     Active Substance: RITUXIMAB-PVVR
     Indication: Granulomatosis with polyangiitis
     Dosage: 1000 MG, WEEKLY, FOR 4 WEEKS
     Route: 042
     Dates: start: 20230124
  48. RUXIENCE [Suspect]
     Active Substance: RITUXIMAB-PVVR
     Indication: Granulomatosis with polyangiitis
     Dosage: 1000 MG, WEEKLY, FOR 4 WEEKS
     Route: 042
     Dates: start: 20230529
  49. RUXIENCE [Suspect]
     Active Substance: RITUXIMAB-PVVR
     Indication: Granulomatosis with polyangiitis
     Dosage: 1000 MG, WEEKLY, FOR 4 WEEKS
     Route: 042
     Dates: start: 20230609, end: 20230609
  50. ERGOCALCIFEROL [Concomitant]
     Active Substance: ERGOCALCIFEROL
     Indication: Product used for unknown indication
     Route: 065
  51. FOLIC ACID [Concomitant]
     Active Substance: FOLIC ACID
     Indication: Product used for unknown indication
     Route: 065
  52. GABAPENTIN [Concomitant]
     Active Substance: GABAPENTIN
     Indication: Product used for unknown indication
     Route: 065
  53. JARDIANCE [Concomitant]
     Active Substance: EMPAGLIFLOZIN
     Indication: Product used for unknown indication
  54. OZEMPIC [Concomitant]
     Active Substance: SEMAGLUTIDE
     Indication: Product used for unknown indication
  55. PANTOPRAZOLE [Concomitant]
     Active Substance: PANTOPRAZOLE
     Indication: Product used for unknown indication
  56. RISEDRONATE SODIUM [Concomitant]
     Active Substance: RISEDRONATE SODIUM
     Indication: Product used for unknown indication
     Route: 065
  57. ROSUVASTATIN [Concomitant]
     Active Substance: ROSUVASTATIN
     Indication: Product used for unknown indication
     Route: 065
  58. SOLU-MEDROL [Concomitant]
     Active Substance: METHYLPREDNISOLONE SODIUM SUCCINATE
     Indication: Product used for unknown indication
     Route: 065
     Dates: start: 20230124, end: 20230124

REACTIONS (33)
  - Pulmonary mass [Not Recovered/Not Resolved]
  - Subglottic laryngitis [Recovered/Resolved]
  - Lung disorder [Not Recovered/Not Resolved]
  - Sinus disorder [Unknown]
  - Lower respiratory tract infection [Not Recovered/Not Resolved]
  - Pulmonary congestion [Not Recovered/Not Resolved]
  - Weight fluctuation [Recovering/Resolving]
  - Product use issue [Unknown]
  - Off label use [Unknown]
  - Pneumonia bacterial [Recovered/Resolved]
  - Malaise [Not Recovered/Not Resolved]
  - Illness [Unknown]
  - C-reactive protein increased [Unknown]
  - Feeling abnormal [Unknown]
  - Productive cough [Unknown]
  - Nasal congestion [Unknown]
  - Nasal discomfort [Unknown]
  - Arthralgia [Unknown]
  - Fatigue [Unknown]
  - Therapeutic response shortened [Unknown]
  - Myalgia [Not Recovered/Not Resolved]
  - Arthritis [Unknown]
  - Cardiac dysfunction [Not Recovered/Not Resolved]
  - COVID-19 [Recovered/Resolved]
  - Dyspnoea [Not Recovered/Not Resolved]
  - Cough [Unknown]
  - Ear infection [Unknown]
  - Stress [Unknown]
  - Blood pressure increased [Unknown]
  - Sinus disorder [Unknown]
  - Body temperature increased [Unknown]
  - Asthenia [Unknown]
  - Oedema peripheral [Unknown]

NARRATIVE: CASE EVENT DATE: 20210101
